FAERS Safety Report 20610621 (Version 1)
Quarter: 2022Q1

REPORT INFORMATION
  Report Type: Spontaneous
  Country: TW (occurrence: None)
  Receive Date: 20220318
  Receipt Date: 20220318
  Transmission Date: 20220423
  Serious: Yes (Other)
  Sender: FDA-Public Use
  Company Number: TW-ROCHE-3046960

PATIENT
  Age: 17 Year
  Sex: Male

DRUGS (8)
  1. CELLCEPT [Suspect]
     Active Substance: MYCOPHENOLATE MOFETIL
     Indication: Prophylaxis against transplant rejection
     Route: 065
     Dates: start: 201809
  2. TRANDATE [Concomitant]
     Active Substance: LABETALOL HYDROCHLORIDE
  3. PREDNISOLONE [Concomitant]
     Active Substance: PREDNISOLONE
  4. TACROLIMUS [Concomitant]
     Active Substance: TACROLIMUS
  5. SULFAMETHOXAZOLE\TRIMETHOPRIM [Concomitant]
     Active Substance: SULFAMETHOXAZOLE\TRIMETHOPRIM
  6. GANCICLOVIR [Concomitant]
     Active Substance: GANCICLOVIR
  7. NORVASC [Concomitant]
     Active Substance: AMLODIPINE BESYLATE
  8. ECULIZUMAB [Concomitant]
     Active Substance: ECULIZUMAB
     Indication: Atypical haemolytic uraemic syndrome
     Dates: start: 20190328

REACTIONS (2)
  - Atypical haemolytic uraemic syndrome [Recovered/Resolved]
  - Off label use [Unknown]

NARRATIVE: CASE EVENT DATE: 20181201
